APPROVED DRUG PRODUCT: APIXABAN
Active Ingredient: APIXABAN
Strength: 2.5MG
Dosage Form/Route: TABLET;ORAL
Application: A210185 | Product #001
Applicant: ZYDUS PHARMACEUTICALS USA INC
Approved: Feb 27, 2023 | RLD: No | RS: No | Type: DISCN